FAERS Safety Report 10428692 (Version 1)
Quarter: 2014Q3

REPORT INFORMATION
  Report Type: Spontaneous
  Country: CA (occurrence: None)
  Receive Date: 20140902
  Receipt Date: 20140902
  Transmission Date: 20150326
  Serious: Yes (Death, Other)
  Sender: FDA-Public Use
  Company Number: BD-2014-0051

PATIENT
  Age: 14 Year

DRUGS (3)
  1. ANTACID (ALUMINUM HYDROXIDE, DIMETICONE, MAGNESIUM HYDROXIDE) [Concomitant]
  2. ONDANSETRON [Suspect]
     Active Substance: ONDANSETRON
     Route: 030
  3. ONDANSETRON [Suspect]
     Active Substance: ONDANSETRON
     Indication: VOMITING
     Route: 030

REACTIONS (2)
  - Ventricular fibrillation [None]
  - Ventricular tachycardia [None]
